FAERS Safety Report 16141267 (Version 3)
Quarter: 2019Q3

REPORT INFORMATION
  Report Type: Spontaneous
  Country: US (occurrence: US)
  Receive Date: 20190401
  Receipt Date: 20190702
  Transmission Date: 20191004
  Serious: Yes (Hospitalization)
  Sender: FDA-Public Use
  Company Number: US-PFIZER INC-2019130597

PATIENT
  Age: 66 Year
  Sex: Male
  Weight: 76.2 kg

DRUGS (6)
  1. IRBESARTAN. [Concomitant]
     Active Substance: IRBESARTAN
     Indication: ARTERIAL DISORDER
     Dosage: 300 MG, 1X/DAY
     Route: 048
     Dates: start: 201203
  2. BRILINTA [Concomitant]
     Active Substance: TICAGRELOR
     Indication: ANTICOAGULANT THERAPY
     Dosage: 60 MG, 2X/DAY
     Route: 048
     Dates: start: 201203
  3. AMLODIPINE [Concomitant]
     Active Substance: AMLODIPINE BESYLATE
     Indication: HYPERTENSION
     Dosage: 5 MG, 1X/DAY (5 MG ONCE IN THE MORNING BY MOUTH)
     Route: 048
     Dates: start: 201203
  4. BABY ASPIRIN [Concomitant]
     Active Substance: ASPIRIN
     Indication: ANTICOAGULANT THERAPY
     Dosage: 81 MG, 1X/DAY
     Dates: start: 201203
  5. SIMVASTATIN. [Concomitant]
     Active Substance: SIMVASTATIN
     Indication: BLOOD CHOLESTEROL ABNORMAL
     Dosage: 20 MG, 1X/DAY (20 MG ONE TABLET AT NIGHT BY MOUTH)
     Route: 048
     Dates: start: 201203
  6. VIAGRA [Suspect]
     Active Substance: SILDENAFIL CITRATE
     Indication: ERECTILE DYSFUNCTION
     Dosage: 100 MG, AS NEEDED (ONE AS NEEDED BY MOUTH)
     Route: 048
     Dates: start: 2017

REACTIONS (4)
  - Concussion [Unknown]
  - Neck pain [Not Recovered/Not Resolved]
  - Back pain [Not Recovered/Not Resolved]
  - Road traffic accident [Recovered/Resolved with Sequelae]

NARRATIVE: CASE EVENT DATE: 20190102
